FAERS Safety Report 6598909-6 (Version None)
Quarter: 2010Q1

REPORT INFORMATION
  Report Type: 
  Country: None (occurrence: None)
  Receive Date: 20100224
  Receipt Date: 20090213
  Transmission Date: 20100710
  Serious: Yes (Other)
  Sender: FDA-Public Use
  Company Number: US-BRISTOL-MYERS SQUIBB COMPANY-14505796

PATIENT

DRUGS (1)
  1. GLUCOPHAGE [Suspect]

REACTIONS (2)
  - DRUG TOXICITY [None]
  - PYREXIA [None]
